FAERS Safety Report 17352608 (Version 3)
Quarter: 2020Q1

REPORT INFORMATION
  Report Type: Spontaneous
  Country: US (occurrence: US)
  Receive Date: 20200131
  Receipt Date: 20200312
  Transmission Date: 20200409
  Serious: No
  Sender: FDA-Public Use
  Company Number: US-009507513-2001USA010588

PATIENT
  Age: 27 Year
  Sex: Female
  Weight: 87.98 kg

DRUGS (1)
  1. NEXPLANON [Suspect]
     Active Substance: ETONOGESTREL
     Indication: CONTRACEPTION
     Dosage: 68MG/ 1 IMPLANT ONCE
     Route: 059
     Dates: start: 20200115

REACTIONS (3)
  - Device kink [Not Recovered/Not Resolved]
  - Implant site pain [Unknown]
  - Implant site rash [Unknown]

NARRATIVE: CASE EVENT DATE: 202001
